FAERS Safety Report 7440726-9 (Version None)
Quarter: 2011Q2

REPORT INFORMATION
  Report Type: 
  Country: None (occurrence: None)
  Receive Date: 20110427
  Receipt Date: 20110415
  Transmission Date: 20111010
  Serious: Yes (Hospitalization, Other)
  Sender: FDA-Public Use
  Company Number: IT-CUBIST-2010S1001802

PATIENT
  Age: 43 Year
  Sex: Male

DRUGS (5)
  1. CUBICIN [Suspect]
     Indication: INFECTION
     Route: 065
     Dates: start: 20101104, end: 20101112
  2. ACYCLOVIR SODIUM [Concomitant]
     Indication: PRODUCT USED FOR UNKNOWN INDICATION
     Route: 065
  3. DEURSIL [Concomitant]
     Indication: PRODUCT USED FOR UNKNOWN INDICATION
     Route: 065
  4. BACTRIM [Concomitant]
     Indication: PRODUCT USED FOR UNKNOWN INDICATION
     Route: 065
  5. ALIMENTARY TRACT AND METABOLISM [Concomitant]
     Indication: PROPHYLAXIS
     Route: 065

REACTIONS (3)
  - RASH [None]
  - ERYTHEMA MULTIFORME [None]
  - DIARRHOEA [None]
